FAERS Safety Report 12744202 (Version 1)
Quarter: 2016Q3

REPORT INFORMATION
  Report Type: Spontaneous
  Country: US (occurrence: US)
  Receive Date: 20160914
  Receipt Date: 20160914
  Transmission Date: 20161109
  Serious: No
  Sender: FDA-Public Use
  Company Number: US-ROCHE-1769806

PATIENT
  Sex: Male

DRUGS (2)
  1. COTELLIC [Suspect]
     Active Substance: COBIMETINIB
     Indication: MALIGNANT MELANOMA
     Dosage: 1 TAB DAILY FOR 3 WEEKS AND OFF FOR ONE WEEK.
     Route: 048
     Dates: start: 20160526
  2. ZELBORAF [Suspect]
     Active Substance: VEMURAFENIB
     Indication: MALIGNANT MELANOMA
     Dosage: 2 TABS TWICE A DAY
     Route: 048
     Dates: start: 20160526

REACTIONS (3)
  - Fatigue [Unknown]
  - Rash [Unknown]
  - Skin discolouration [Unknown]
